FAERS Safety Report 7392204-3 (Version None)
Quarter: 2011Q2

REPORT INFORMATION
  Report Type: 
  Country: None (occurrence: None)
  Receive Date: 20110404
  Receipt Date: 20110329
  Transmission Date: 20111010
  Serious: Yes (Life-Threatening, Hospitalization)
  Sender: FDA-Public Use
  Company Number: B0710171A

PATIENT
  Sex: Male
  Weight: 12.2 kg

DRUGS (3)
  1. FRAGMIN [Concomitant]
     Dosage: 1ML PER DAY
     Route: 042
     Dates: start: 20100208, end: 20100315
  2. ALKERAN [Suspect]
     Indication: STEM CELL TRANSPLANT
     Dosage: 50MG PER DAY
     Route: 042
     Dates: start: 20100212, end: 20100213
  3. THIOTEPA [Suspect]
     Indication: STEM CELL TRANSPLANT
     Dosage: 120MG PER DAY
     Dates: start: 20100209, end: 20100211

REACTIONS (2)
  - MUCOUS MEMBRANE DISORDER [None]
  - FEBRILE NEUTROPENIA [None]
